FAERS Safety Report 8947157 (Version 1)
Quarter: 2012Q4

REPORT INFORMATION
  Report Type: 
  Country: US (occurrence: US)
  Receive Date: 20121205
  Receipt Date: 20121205
  Transmission Date: 20130627
  Serious: No
  Sender: FDA-Public Use
  Company Number: US-PFIZER INC-2012303260

PATIENT
  Age: 49 Year
  Sex: Female

DRUGS (1)
  1. ADVIL [Suspect]
     Indication: HEADACHE
     Dosage: 200 mg, UNK
     Route: 048
     Dates: start: 20121203

REACTIONS (1)
  - Abdominal pain upper [Recovered/Resolved]
